FAERS Safety Report 17202853 (Version 1)
Quarter: 2019Q4

REPORT INFORMATION
  Report Type: Spontaneous
  Country: US (occurrence: US)
  Receive Date: 20191226
  Receipt Date: 20191226
  Transmission Date: 20200122
  Serious: Yes (Hospitalization)
  Sender: FDA-Public Use
  Company Number: US-PFIZER INC-2019553191

PATIENT
  Age: 38 Year
  Sex: Female
  Weight: 64.41 kg

DRUGS (1)
  1. IBRANCE [Suspect]
     Active Substance: PALBOCICLIB
     Indication: BREAST CANCER METASTATIC
     Dosage: 75 MG, CYCLIC (D 1-21 Q (EVERY) 28 DAYS)
     Route: 048
     Dates: start: 20190913

REACTIONS (3)
  - Bronchitis [Unknown]
  - Increased appetite [Unknown]
  - Insomnia [Unknown]

NARRATIVE: CASE EVENT DATE: 20191212
